FAERS Safety Report 9222140 (Version 1)
Quarter: 2013Q2

REPORT INFORMATION
  Report Type: Spontaneous
  Country: US (occurrence: US)
  Receive Date: 20130410
  Receipt Date: 20130410
  Transmission Date: 20140414
  Serious: Yes (Hospitalization)
  Sender: FDA-Public Use
  Company Number: US-UCBSA-082459

PATIENT
  Age: 4 Year
  Sex: Female

DRUGS (6)
  1. LACOSAMIDE [Suspect]
     Dosage: 3.8 MG/KG/DAY
  2. LACOSAMIDE [Interacting]
     Dosage: 7.7 MG/KG/DAY
  3. LACOSAMIDE [Interacting]
  4. VALPROIC ACID [Interacting]
     Dosage: 60 MG/KG/DAY
  5. CARBAMAZEPINE [Concomitant]
  6. OXCARBAZEPINE [Concomitant]
     Dosage: 45MG/KG/DAY

REACTIONS (4)
  - Hyperammonaemic encephalopathy [Recovered/Resolved]
  - Bone marrow failure [Recovered/Resolved]
  - Drug interaction [Recovered/Resolved]
  - Drug ineffective [Recovered/Resolved]
